FAERS Safety Report 7672943-7 (Version None)
Quarter: 2011Q3

REPORT INFORMATION
  Report Type: 
  Country: None (occurrence: None)
  Receive Date: 20110809
  Receipt Date: 20110621
  Transmission Date: 20111222
  Serious: Yes (Life-Threatening, Hospitalization, Disabling)
  Sender: FDA-Public Use
  Company Number: US-GILEAD-2011-0040931

PATIENT
  Sex: Female
  Weight: 62.652 kg

DRUGS (22)
  1. ATRIPLA [Suspect]
     Indication: HIV INFECTION
     Route: 048
     Dates: start: 20080911, end: 20110302
  2. ACETAMINOPHEN W/ CODEINE [Concomitant]
     Indication: SCIATICA
  3. TRAZODONE HCL [Concomitant]
     Indication: INSOMNIA
  4. FAMOTIDINE [Concomitant]
     Indication: PRODUCT USED FOR UNKNOWN INDICATION
  5. METFORMIN HCL [Concomitant]
     Indication: TYPE 2 DIABETES MELLITUS
  6. TRUVADA [Suspect]
     Indication: HIV INFECTION
     Route: 048
     Dates: start: 20080911
  7. METOCLOPRAMIDE [Concomitant]
     Indication: PRODUCT USED FOR UNKNOWN INDICATION
  8. SIMVASTATIN [Concomitant]
     Indication: PRODUCT USED FOR UNKNOWN INDICATION
  9. IBUPROFEN [Concomitant]
     Indication: SCIATICA
  10. EFAVIRENZ [Suspect]
     Indication: HIV INFECTION
     Route: 048
     Dates: start: 20080911, end: 20110302
  11. TERCONAZOLE [Concomitant]
     Indication: FUNGAL INFECTION
  12. LAMOTRIGINE [Concomitant]
     Indication: DEPRESSION
  13. BUPROPION HCL [Concomitant]
     Indication: DEPRESSION
  14. VENLAFAXINE [Concomitant]
     Indication: DEPRESSION
  15. ACYCLOVIR [Concomitant]
     Indication: GENITAL HERPES
  16. BACTRIM [Concomitant]
     Indication: PROPHYLAXIS
  17. LORAZEPAM [Concomitant]
     Indication: PRODUCT USED FOR UNKNOWN INDICATION
  18. ZYRTEC [Concomitant]
     Indication: SEASONAL ALLERGY
  19. TRIAMCINOLONE ACETONIDE [Concomitant]
     Indication: PRODUCT USED FOR UNKNOWN INDICATION
  20. LISINOPRIL [Concomitant]
     Indication: HYPERTENSION
  21. ATENOLOL [Concomitant]
     Indication: HYPERTENSION
  22. GEMFIBROZIL [Concomitant]
     Indication: PRODUCT USED FOR UNKNOWN INDICATION

REACTIONS (13)
  - MULTI-ORGAN DISORDER [None]
  - HAEMODIALYSIS [None]
  - SEPTIC SHOCK [None]
  - RENAL FAILURE ACUTE [None]
  - LACTIC ACIDOSIS [None]
  - UNRESPONSIVE TO STIMULI [None]
  - OXYGEN SATURATION DECREASED [None]
  - LUNG INFILTRATION [None]
  - MOTOR DYSFUNCTION [None]
  - RESPIRATORY FAILURE [None]
  - PLEURAL EFFUSION [None]
  - TUBULOINTERSTITIAL NEPHRITIS [None]
  - DRUG ERUPTION [None]
